FAERS Safety Report 9518674 (Version 1)
Quarter: 2013Q1

REPORT INFORMATION
  Report Type: Spontaneous
  Country: US (occurrence: None)
  Receive Date: 20130305
  Receipt Date: 20130305
  Transmission Date: 20140127
  Serious: Yes (Other)
  Sender: FDA-Public Use
  Company Number: 163-21880-12121267

PATIENT
  Age: 81 Year
  Sex: Male

DRUGS (6)
  1. REVLIMID [Suspect]
     Indication: CHRONIC LYMPHOCYTIC LEUKAEMIA
     Dosage: 1 IN 1 D
     Route: 048
     Dates: start: 200905
  2. RITUXAN (RITUXIMAB) (INJECTION) [Concomitant]
  3. TAMOXIFEN (TAMOXIFEN) (UNKNOWN) [Concomitant]
  4. LIPITOR (ATORVASTATIN) (UNKNOWN) [Concomitant]
  5. VITAMIN D (ERGOCALCIFEROL) (CAPSULES) [Concomitant]
  6. ACYCLOVIR (ACICLOVIR) (TABLETS) [Concomitant]

REACTIONS (2)
  - Nausea [None]
  - Fatigue [None]
